FAERS Safety Report 10460808 (Version 1)
Quarter: 2014Q3

REPORT INFORMATION
  Report Type: Other
  Country: PR (occurrence: PR)
  Receive Date: 20140918
  Receipt Date: 20140918
  Transmission Date: 20150326
  Serious: Yes (Other)
  Sender: FDA-Public Use
  Company Number: PR-SHIRE-PR201405742

PATIENT
  Sex: Female
  Weight: 62.59 kg

DRUGS (6)
  1. GLUCOVANCE [Concomitant]
     Active Substance: GLYBURIDE\METFORMIN HYDROCHLORIDE
     Indication: DIABETES MELLITUS
     Dosage: UNK, 2X/DAY:BID
     Route: 048
  2. NEXIUM [Concomitant]
     Active Substance: ESOMEPRAZOLE MAGNESIUM
     Indication: GASTROOESOPHAGEAL REFLUX DISEASE
     Dosage: 40 MG, 1X/DAY:QD
     Route: 048
  3. CINRYZE [Suspect]
     Active Substance: HUMAN C1-ESTERASE INHIBITOR
     Indication: HEREDITARY ANGIOEDEMA
     Dosage: 1000 UNITS, OTHER (EVERY 3 DAYS)
     Route: 042
  4. CINRYZE [Suspect]
     Active Substance: HUMAN C1-ESTERASE INHIBITOR
     Indication: PROPHYLAXIS
  5. FIRAZYR [Suspect]
     Active Substance: ICATIBANT ACETATE
     Indication: HEREDITARY ANGIOEDEMA
     Dosage: 30 MG, AS REQ^D
     Route: 058
  6. NEURONTIN [Concomitant]
     Active Substance: GABAPENTIN
     Indication: PRODUCT USED FOR UNKNOWN INDICATION
     Dosage: 400 MG, 1X/DAY:QD(AT NIGHT)
     Route: 048

REACTIONS (3)
  - Sepsis [Unknown]
  - Thrombosis [Unknown]
  - Catheter site infection [Unknown]

NARRATIVE: CASE EVENT DATE: 2013
